FAERS Safety Report 8344231-7 (Version None)
Quarter: 2012Q2

REPORT INFORMATION
  Report Type: 
  Country: None (occurrence: None)
  Receive Date: 20120402
  Receipt Date: 20111003
  Transmission Date: 20120825
  Serious: Yes (Other)
  Sender: FDA-Public Use
  Company Number: 303310USA

PATIENT
  Age: 68 Year
  Sex: Female

DRUGS (1)
  1. PRAMIPEXOLE DIHYDROCHLORIDE [Suspect]
     Indication: RESTLESS LEGS SYNDROME
     Dosage: (1 MG), ORAL
     Route: 048
     Dates: start: 20110901, end: 20110901

REACTIONS (4)
  - VOMITING [None]
  - LOSS OF CONSCIOUSNESS [None]
  - FATIGUE [None]
  - DIARRHOEA [None]
